FAERS Safety Report 24466989 (Version 1)
Quarter: 2024Q4

REPORT INFORMATION
  Report Type: Report from Study
  Country: US (occurrence: US)
  Receive Date: 20241018
  Receipt Date: 20241018
  Transmission Date: 20250115
  Serious: No
  Sender: ROCHE
  Company Number: US-ROCHE-3550985

PATIENT
  Age: 71 Year
  Sex: Female
  Weight: 53.9 kg

DRUGS (18)
  1. XOLAIR [Suspect]
     Active Substance: OMALIZUMAB
     Indication: Asthma
     Route: 058
  2. XOLAIR [Suspect]
     Active Substance: OMALIZUMAB
     Dosage: DATE OF SERVICE: 23/APR/2024, 18/MAR/2023, 21/MAY/2024 RECEIVED 300MG VIAL
     Route: 058
     Dates: start: 202312
  3. ALBUTEROL [Concomitant]
     Active Substance: ALBUTEROL
  4. ADVAIR HFA [Concomitant]
     Active Substance: FLUTICASONE PROPIONATE\SALMETEROL XINAFOATE
  5. THEOPHYLLINE [Concomitant]
     Active Substance: THEOPHYLLINE
  6. ZYRTEC [Concomitant]
     Active Substance: CETIRIZINE HYDROCHLORIDE
  7. NEXIUM [Concomitant]
     Active Substance: ESOMEPRAZOLE MAGNESIUM
  8. TOPIRAMATE [Concomitant]
     Active Substance: TOPIRAMATE
  9. LISINOPRIL [Concomitant]
     Active Substance: LISINOPRIL
  10. SIMVASTATIN [Concomitant]
     Active Substance: SIMVASTATIN
  11. MONTELUKAST [Concomitant]
     Active Substance: MONTELUKAST
  12. SPIRIVA [Concomitant]
     Active Substance: TIOTROPIUM BROMIDE MONOHYDRATE
  13. UBRELVY [Concomitant]
     Active Substance: UBROGEPANT
  14. PREDNISONE [Concomitant]
     Active Substance: PREDNISONE
  15. NORVASC [Concomitant]
     Active Substance: AMLODIPINE BESYLATE
  16. TUSSIONEX PENNKINETIC [Concomitant]
     Active Substance: CHLORPHENIRAMINE\HYDROCODONE
  17. DELSYM [Concomitant]
     Active Substance: DEXTROMETHORPHAN
  18. EPIPEN [Concomitant]
     Active Substance: EPINEPHRINE

REACTIONS (4)
  - Cough [Not Recovered/Not Resolved]
  - Nasal congestion [Unknown]
  - Illness [Unknown]
  - Off label use [Unknown]

NARRATIVE: CASE EVENT DATE: 20240401
